FAERS Safety Report 11930317 (Version 2)
Quarter: 2016Q2

REPORT INFORMATION
  Report Type: Spontaneous
  Country: US (occurrence: US)
  Receive Date: 20160120
  Receipt Date: 20160429
  Transmission Date: 20160815
  Serious: Yes (Hospitalization, Other)
  Sender: FDA-Public Use
  Company Number: US-PFIZER INC-2016024027

PATIENT
  Age: 63 Year
  Sex: Male

DRUGS (5)
  1. TESTOSTERONE. [Suspect]
     Active Substance: TESTOSTERONE
     Indication: HORMONE REPLACEMENT THERAPY
     Dosage: UNK
     Dates: start: 201206, end: 201207
  2. TESTOSTERONE. [Suspect]
     Active Substance: TESTOSTERONE
     Indication: HORMONE REPLACEMENT THERAPY
     Dosage: UNK, EVERY 3 WEEKS
     Dates: start: 200901, end: 201304
  3. DELATESTRYL [Suspect]
     Active Substance: TESTOSTERONE ENANTHATE
     Indication: HORMONE REPLACEMENT THERAPY
     Dosage: UNK
     Dates: start: 200901, end: 201304
  4. DEPO-TESTOSTERONE [Suspect]
     Active Substance: TESTOSTERONE CYPIONATE
     Indication: HORMONE REPLACEMENT THERAPY
     Dosage: UNK
     Dates: start: 200901, end: 201304
  5. ANDRODERM [Suspect]
     Active Substance: TESTOSTERONE
     Indication: HORMONE REPLACEMENT THERAPY
     Dosage: UNK, 1X/DAY (1 PATCH TO SKIN)
     Dates: start: 201104, end: 201201

REACTIONS (5)
  - Peripheral vascular disorder [Unknown]
  - Thrombosis [Unknown]
  - Peripheral ischaemia [Unknown]
  - Supraventricular tachycardia [Unknown]
  - Dyspnoea [Unknown]

NARRATIVE: CASE EVENT DATE: 20101117
